FAERS Safety Report 9743517 (Version 2)
Quarter: 2013Q4

REPORT INFORMATION
  Report Type: Spontaneous
  Country: US (occurrence: US)
  Receive Date: 20131210
  Receipt Date: 20131212
  Transmission Date: 20140711
  Serious: No
  Sender: FDA-Public Use
  Company Number: US-TEVA-384435USA

PATIENT
  Age: 28 Year
  Sex: Female
  Weight: 54.93 kg

DRUGS (2)
  1. PARAGARD 380A [Suspect]
     Indication: CONTRACEPTION
     Route: 015
     Dates: start: 20130111, end: 20130128
  2. LEXAPRO [Concomitant]
     Indication: ANXIETY
     Dosage: 10 MILLIGRAM DAILY;
     Dates: start: 201210

REACTIONS (1)
  - Device expulsion [Recovered/Resolved]
